FAERS Safety Report 10673521 (Version 1)
Quarter: 2014Q4

REPORT INFORMATION
  Report Type: Spontaneous
  Country: None (occurrence: None)
  Receive Date: 20141222
  Receipt Date: 20141222
  Transmission Date: 20150529
  Serious: Yes (Hospitalization)
  Sender: FDA-Public Use
  Company Number: None

PATIENT
  Age: 69 Year
  Sex: Female
  Weight: 90.72 kg

DRUGS (6)
  1. METFORMIN [Concomitant]
     Active Substance: METFORMIN HYDROCHLORIDE
  2. GLYBURIDE. [Concomitant]
     Active Substance: GLYBURIDE
  3. ASA [Concomitant]
     Active Substance: ASPIRIN
  4. DEFINITY [Suspect]
     Active Substance: PERFLUTREN
     Indication: IMAGING PROCEDURE
     Dosage: 1 VIAL DILUTED 8.5 CC NS; PER TEST PROTOCOL
     Route: 042
     Dates: start: 20141218, end: 20141218
  5. HCTZ [Concomitant]
     Active Substance: HYDROCHLOROTHIAZIDE
  6. NORVASC [Concomitant]
     Active Substance: AMLODIPINE BESYLATE

REACTIONS (5)
  - Rash erythematous [None]
  - Tremor [None]
  - Neck pain [None]
  - Oxygen saturation decreased [None]
  - Blood pressure increased [None]

NARRATIVE: CASE EVENT DATE: 20141218
